FAERS Safety Report 10452904 (Version 3)
Quarter: 2014Q3

REPORT INFORMATION
  Report Type: Spontaneous
  Country: FR (occurrence: FR)
  Receive Date: 20140915
  Receipt Date: 20140918
  Transmission Date: 20150326
  Serious: Yes (Life-Threatening)
  Sender: FDA-Public Use
  Company Number: FR-SANOFI-AVENTIS-200912857FR

PATIENT
  Age: 37 Year
  Sex: Female

DRUGS (12)
  1. RIMIFON [Suspect]
     Active Substance: ISONIAZID
     Indication: HIV TEST POSITIVE
     Dosage: DOSE UNIT: 150 MG
     Route: 048
     Dates: start: 20090425, end: 20090516
  2. SINGULAIR [Suspect]
     Active Substance: MONTELUKAST SODIUM
     Indication: IMMUNE RECONSTITUTION INFLAMMATORY SYNDROME
     Dosage: DOSE UNIT: 10 MG
     Route: 048
     Dates: start: 20090511, end: 20090516
  3. ANSATIPINE [Concomitant]
     Active Substance: RIFABUTIN
     Indication: DISSEMINATED TUBERCULOSIS
     Dates: start: 20090425, end: 20090503
  4. ZOPICLONE [Suspect]
     Active Substance: ZOPICLONE
     Indication: INSOMNIA
     Dosage: DOSE UNIT: 7.5 MG
     Route: 048
     Dates: start: 20090427, end: 20090516
  5. RIFAMPICIN [Suspect]
     Active Substance: RIFAMPIN
     Indication: DISSEMINATED TUBERCULOSIS
     Dosage: DOSE UNIT: 300 MG
     Route: 048
     Dates: start: 20090503, end: 20090516
  6. MYAMBUTOL [Suspect]
     Active Substance: ETHAMBUTOL HYDROCHLORIDE
     Indication: DISSEMINATED TUBERCULOSIS
     Dosage: DOSE UNIT: 400 MG
     Route: 048
     Dates: start: 20090425, end: 20090516
  7. PYRAZINAMIDE. [Suspect]
     Active Substance: PYRAZINAMIDE
     Indication: DISSEMINATED TUBERCULOSIS
     Dosage: DOSE UNIT: 500 MG
     Route: 048
     Dates: start: 20090425, end: 20090516
  8. TRUVADA [Suspect]
     Active Substance: EMTRICITABINE\TENOFOVIR DISOPROXIL FUMARATE
     Indication: HIV TEST POSITIVE
     Dosage: DOSE:1 UNIT(S)
     Route: 048
     Dates: start: 20090503, end: 20090516
  9. ZECLAR [Concomitant]
     Active Substance: CLARITHROMYCIN
     Indication: DISSEMINATED TUBERCULOSIS
     Route: 048
     Dates: start: 20090425, end: 20090503
  10. SULFAMETHOXAZOLE/TRIMETHOPRIM [Suspect]
     Active Substance: SULFAMETHOXAZOLE\TRIMETHOPRIM
     Indication: ANTIFUNGAL PROPHYLAXIS
     Dosage: DOSE:1 UNIT(S)
     Route: 048
     Dates: start: 20090425, end: 20090516
  11. SUSTIVA [Suspect]
     Active Substance: EFAVIRENZ
     Indication: HIV TEST POSITIVE
     Dosage: DOSE UNIT: 600 MG
     Route: 048
     Dates: start: 20090503, end: 20090516
  12. FUZEON [Suspect]
     Active Substance: ENFUVIRTIDE
     Indication: HIV TEST POSITIVE
     Dosage: DOSE UNIT: 90 MG/ML DOSE:1 UNIT(S)
     Dates: start: 20090503, end: 20090516

REACTIONS (6)
  - Cholestasis [Recovering/Resolving]
  - Lactic acidosis [Recovered/Resolved]
  - Hepatitis fulminant [Recovered/Resolved]
  - Hepatocellular injury [Recovering/Resolving]
  - Jaundice [Recovered/Resolved]
  - Tachypnoea [Recovered/Resolved]

NARRATIVE: CASE EVENT DATE: 20090515
